FAERS Safety Report 5687793-0 (Version None)
Quarter: 2008Q1

REPORT INFORMATION
  Report Type: 
  Country: None (occurrence: None)
  Receive Date: 20080328
  Receipt Date: 20070102
  Transmission Date: 20080703
  Serious: Yes (Hospitalization)
  Sender: FDA-Public Use
  Company Number: US-BAYER-US-2006-002355

PATIENT
  Age: 25 Year
  Sex: Female
  Weight: 80 kg

DRUGS (2)
  1. MIRENA [Suspect]
     Indication: CONTRACEPTION
     Route: 015
     Dates: start: 20021201, end: 20060227
  2. MIRENA [Suspect]
     Route: 015
     Dates: start: 20041229

REACTIONS (9)
  - BACK PAIN [None]
  - COMPLICATION OF DEVICE INSERTION [None]
  - DEHYDRATION [None]
  - INTERVERTEBRAL DISC PROTRUSION [None]
  - MEDICATION ERROR [None]
  - NORMAL NEWBORN [None]
  - PREGNANCY WITH CONTRACEPTIVE DEVICE [None]
  - UTERINE CONTRACTIONS DURING PREGNANCY [None]
  - UTERINE RUPTURE [None]
